FAERS Safety Report 7950845-6 (Version None)
Quarter: 2011Q4

REPORT INFORMATION
  Report Type: 
  Country: None (occurrence: None)
  Receive Date: 20111201
  Receipt Date: 20111122
  Transmission Date: 20120403
  Serious: Yes (Hospitalization)
  Sender: FDA-Public Use
  Company Number: US-BIOGENIDEC-2011BI035216

PATIENT
  Age: 42 Year
  Sex: Female

DRUGS (1)
  1. TYSABRI [Suspect]
     Indication: MULTIPLE SCLEROSIS
     Route: 042
     Dates: start: 20100817, end: 20110804

REACTIONS (6)
  - MUSCULOSKELETAL STIFFNESS [None]
  - MUSCULAR WEAKNESS [None]
  - MUSCLE SPASMS [None]
  - ACTIVITIES OF DAILY LIVING IMPAIRED [None]
  - FALL [None]
  - JOINT INJURY [None]
